FAERS Safety Report 13446849 (Version 4)
Quarter: 2017Q4

REPORT INFORMATION
  Report Type: Spontaneous
  Country: US (occurrence: US)
  Receive Date: 20170417
  Receipt Date: 20171002
  Transmission Date: 20180320
  Serious: Yes (Hospitalization, Other)
  Sender: FDA-Public Use
  Company Number: US-PFIZER INC-2017157059

PATIENT
  Age: 64 Year
  Sex: Female

DRUGS (2)
  1. XELJANZ XR [Suspect]
     Active Substance: TOFACITINIB CITRATE
     Indication: RHEUMATOID ARTHRITIS
     Dosage: 11 MG, DAILY
     Route: 048
     Dates: start: 20170101
  2. XELJANZ XR [Suspect]
     Active Substance: TOFACITINIB CITRATE
     Dosage: 11 MG, DAILY
     Route: 048
     Dates: start: 20170107, end: 2017

REACTIONS (11)
  - Fall [Unknown]
  - Arterial stenosis [Unknown]
  - Gait disturbance [Unknown]
  - Condition aggravated [Unknown]
  - Herpes zoster [Recovered/Resolved]
  - Nervous system disorder [Unknown]
  - Joint stiffness [Recovered/Resolved]
  - Pain [Unknown]
  - Sciatica [Unknown]
  - Hypoaesthesia [Unknown]
  - Plantar fasciitis [Unknown]

NARRATIVE: CASE EVENT DATE: 20170707
